FAERS Safety Report 13906115 (Version 4)
Quarter: 2017Q4

REPORT INFORMATION
  Report Type: Spontaneous
  Country: US (occurrence: US)
  Receive Date: 20170825
  Receipt Date: 20171128
  Transmission Date: 20180320
  Serious: Yes (Hospitalization, Other)
  Sender: FDA-Public Use
  Company Number: US-ASTELLAS-2017US011401

PATIENT
  Age: 75 Year
  Sex: Male

DRUGS (2)
  1. XTANDI [Suspect]
     Active Substance: ENZALUTAMIDE
     Indication: PROSTATE CANCER
     Route: 048
  2. XTANDI [Suspect]
     Active Substance: ENZALUTAMIDE
     Route: 048

REACTIONS (15)
  - Dizziness [Not Recovered/Not Resolved]
  - Cystitis [Unknown]
  - Malignant neoplasm progression [Unknown]
  - Constipation [Not Recovered/Not Resolved]
  - Urinary tract infection [Unknown]
  - Fall [Not Recovered/Not Resolved]
  - Autonomic nervous system imbalance [Unknown]
  - Weight decreased [Not Recovered/Not Resolved]
  - Drug intolerance [Unknown]
  - Peripheral swelling [Not Recovered/Not Resolved]
  - Decreased appetite [Not Recovered/Not Resolved]
  - Hot flush [Not Recovered/Not Resolved]
  - Hypersomnia [Not Recovered/Not Resolved]
  - Fatigue [Not Recovered/Not Resolved]
  - Balance disorder [Not Recovered/Not Resolved]

NARRATIVE: CASE EVENT DATE: 20171023
